FAERS Safety Report 7189973-4 (Version None)
Quarter: 2010Q4

REPORT INFORMATION
  Report Type: 
  Country: None (occurrence: None)
  Receive Date: 20101223
  Receipt Date: 20101214
  Transmission Date: 20110411
  Serious: Yes (Other)
  Sender: FDA-Public Use
  Company Number: BE-JNJFOC-20101205661

PATIENT
  Age: 31 Year
  Sex: Male

DRUGS (2)
  1. REMICADE [Suspect]
     Indication: INFLAMMATORY BOWEL DISEASE
     Dosage: HAS HAD 4-5 DOSES
     Route: 042
  2. REMICADE [Suspect]
     Dosage: HAS HAD 4-5 DOSES
     Route: 042

REACTIONS (5)
  - ASTHENIA [None]
  - DRY SKIN [None]
  - HANGOVER [None]
  - HEADACHE [None]
  - SINUSITIS [None]
